FAERS Safety Report 6325910-X (Version None)
Quarter: 2009Q3

REPORT INFORMATION
  Report Type: 
  Country: None (occurrence: None)
  Receive Date: 20090824
  Receipt Date: 20090813
  Transmission Date: 20100115
  Serious: Yes (Other)
  Sender: FDA-Public Use
  Company Number: US-NOVOPROD-290512

PATIENT
  Sex: Female
  Weight: 83.9 kg

DRUGS (7)
  1. ACTIVELLA 0.5/0.1 MG [Suspect]
     Indication: MENOPAUSAL SYMPTOMS
     Dosage: 1 TAB, QD
     Route: 048
     Dates: start: 20090611
  2. JANUVIA [Concomitant]
     Indication: TYPE 2 DIABETES MELLITUS
     Dosage: UNK, QD
     Route: 058
  3. VYTORIN [Concomitant]
     Indication: BLOOD CHOLESTEROL INCREASED
     Dosage: UNK, QD
     Route: 048
  4. NEXIUM [Concomitant]
     Indication: GASTROOESOPHAGEAL REFLUX DISEASE
     Dosage: UNK, QD
     Route: 048
  5. LISINOPRIL [Concomitant]
     Indication: HYPERTENSION
     Dosage: UNK, QD
     Route: 048
  6. SINGULAIR [Concomitant]
     Indication: ASTHMA
     Dosage: UNK, QD
  7. PAMELOR [Concomitant]
     Indication: MIGRAINE
     Dosage: UNK, PRN
     Route: 048

REACTIONS (1)
  - CUTANEOUS SARCOIDOSIS [None]
